FAERS Safety Report 9456668 (Version 2)
Quarter: 2013Q4

REPORT INFORMATION
  Report Type: Spontaneous
  Country: US (occurrence: US)
  Receive Date: 20130813
  Receipt Date: 20131009
  Transmission Date: 20140711
  Serious: Yes (Hospitalization)
  Sender: FDA-Public Use
  Company Number: US-PFIZER INC-2013231073

PATIENT
  Age: 79 Year
  Sex: Male
  Weight: 74.83 kg

DRUGS (5)
  1. REVATIO [Suspect]
     Dosage: 20 MG, 3X/DAY
     Dates: start: 201307
  2. DIGOXIN [Concomitant]
     Indication: CARDIAC DISORDER
     Dosage: 0.125 MG, 1X/DAY
  3. MAGNESIUM OXIDE [Concomitant]
     Dosage: 400 MG, 1X/DAY
  4. TORSEMIDE [Concomitant]
     Dosage: 20 MG, 2X/DAY
  5. ASPIRIN [Concomitant]
     Dosage: 325 MG, 1X/DAY

REACTIONS (1)
  - Arrhythmia [Unknown]
